FAERS Safety Report 9878621 (Version 2)
Quarter: 2014Q1

REPORT INFORMATION
  Report Type: Spontaneous
  Country: GB (occurrence: GB)
  Receive Date: 20140206
  Receipt Date: 20140206
  Transmission Date: 20141002
  Serious: Yes (Hospitalization)
  Sender: FDA-Public Use
  Company Number: GB-BRISTOL-MYERS SQUIBB COMPANY-19940402

PATIENT
  Age: 61 Year
  Sex: Female

DRUGS (1)
  1. ABATACEPT SUBQ INJECTION 125MG/ML [Suspect]
     Indication: RHEUMATOID ARTHRITIS
     Dosage: CHANGED FROM IV TO SUBCUTANEOUS?LAST DOSE:13SEP13
     Route: 058

REACTIONS (2)
  - Grand mal convulsion [Unknown]
  - Drug ineffective [Unknown]
